FAERS Safety Report 6030819-5 (Version None)
Quarter: 2009Q1

REPORT INFORMATION
  Report Type: 
  Country: None (occurrence: None)
  Receive Date: 20090107
  Receipt Date: 20081229
  Transmission Date: 20090719
  Serious: Yes (Death)
  Sender: FDA-Public Use
  Company Number: GB-BAUSCH-2008BL005410

PATIENT
  Sex: Female

DRUGS (3)
  1. PREDNISOLONE [Suspect]
     Indication: RHEUMATOID ARTHRITIS
     Route: 048
     Dates: start: 20071101
  2. HYDROXYCHLOROQUINE SULFATE [Concomitant]
  3. METHOTREXATE [Concomitant]

REACTIONS (1)
  - HAEMATEMESIS [None]
